FAERS Safety Report 24385853 (Version 2)
Quarter: 2024Q4

REPORT INFORMATION
  Report Type: Spontaneous
  Country: US (occurrence: US)
  Receive Date: 20241001
  Receipt Date: 20241019
  Transmission Date: 20250115
  Serious: Yes (Hospitalization)
  Sender: TEVA
  Company Number: US-TEVA-VS-3248615

PATIENT
  Age: 23 Year
  Sex: Male

DRUGS (7)
  1. LEVETIRACETAM [Suspect]
     Active Substance: LEVETIRACETAM
     Indication: Temporal lobe epilepsy
     Dosage: TIME INTERVAL: 0.33333333 DAYS
     Route: 065
  2. TIAGABINE [Suspect]
     Active Substance: TIAGABINE
     Indication: Temporal lobe epilepsy
     Dosage: TIME INTERVAL: 0.33333333 DAYS
     Route: 065
  3. TIAGABINE [Suspect]
     Active Substance: TIAGABINE
     Indication: Temporal lobe epilepsy
     Route: 065
  4. TIAGABINE [Suspect]
     Active Substance: TIAGABINE
     Indication: Temporal lobe epilepsy
     Dosage: TIME INTERVAL: 0.33333333 DAYS
     Route: 065
  5. ESLICARBAZEPINE [Suspect]
     Active Substance: ESLICARBAZEPINE
     Indication: Temporal lobe epilepsy
     Route: 065
  6. LACOSAMIDE [Suspect]
     Active Substance: LACOSAMIDE
     Indication: Temporal lobe epilepsy
     Route: 065
  7. LACOSAMIDE [Suspect]
     Active Substance: LACOSAMIDE
     Indication: Temporal lobe epilepsy
     Route: 065

REACTIONS (2)
  - Toxic encephalopathy [Recovered/Resolved]
  - Drug ineffective [Unknown]
